FAERS Safety Report 19673371 (Version 1)
Quarter: 2021Q3

REPORT INFORMATION
  Report Type: Spontaneous
  Country: US (occurrence: US)
  Receive Date: 20210808
  Receipt Date: 20210808
  Transmission Date: 20211014
  Serious: No
  Sender: FDA-Public Use
  Company Number: None

PATIENT
  Age: 70 Year
  Sex: Female
  Weight: 83.25 kg

DRUGS (4)
  1. MULTIVITAMIN [Concomitant]
     Active Substance: VITAMINS
  2. REGEN?COV [Suspect]
     Active Substance: CASIRIVIMAB\IMDEVIMAB
     Indication: COVID-19
     Route: 042
  3. ENTECAVIR. [Concomitant]
     Active Substance: ENTECAVIR
  4. VIT B, C, D3 [Concomitant]

REACTIONS (5)
  - Infusion related reaction [None]
  - Vomiting [None]
  - Pyrexia [None]
  - Tremor [None]
  - Malaise [None]

NARRATIVE: CASE EVENT DATE: 20210730
